FAERS Safety Report 11246125 (Version 1)
Quarter: 2015Q3

REPORT INFORMATION
  Report Type: Spontaneous
  Country: GB (occurrence: GB)
  Receive Date: 20150708
  Receipt Date: 20150708
  Transmission Date: 20151125
  Serious: Yes (Other)
  Sender: FDA-Public Use
  Company Number: GB-AUROBINDO-AUR-APL-2015-05898

PATIENT
  Sex: Male

DRUGS (2)
  1. SIMVASTATIN 40MG [Suspect]
     Active Substance: SIMVASTATIN
     Indication: HYPERCHOLESTEROLAEMIA
     Dosage: 40 MG, ONCE A DAY
     Route: 048
     Dates: start: 2004
  2. RAMIPRIL 5MG [Suspect]
     Active Substance: RAMIPRIL
     Indication: HYPERTENSION
     Dosage: 5 MG, ONCE A DAY
     Route: 048
     Dates: start: 2004

REACTIONS (2)
  - Skin atrophy [Not Recovered/Not Resolved]
  - Increased tendency to bruise [Not Recovered/Not Resolved]
